FAERS Safety Report 7272317-7 (Version None)
Quarter: 2011Q1

REPORT INFORMATION
  Report Type: 
  Country: None (occurrence: None)
  Receive Date: 20110203
  Receipt Date: 20110128
  Transmission Date: 20110831
  Serious: Yes (Death)
  Sender: FDA-Public Use
  Company Number: PHHY2011DE07270

PATIENT
  Age: 70 Year
  Sex: Male

DRUGS (5)
  1. SANDIMMUNE [Suspect]
     Indication: RENAL TRANSPLANT
     Dosage: 25 MG, UNK
  2. PANTOZOL [Concomitant]
  3. KLACID [Concomitant]
  4. SEROQUEL [Concomitant]
  5. SORTIS [Concomitant]
     Indication: CEREBRAL INFARCTION

REACTIONS (3)
  - RHABDOMYOLYSIS [None]
  - BLOOD CREATINE PHOSPHOKINASE INCREASED [None]
  - CRUSH SYNDROME [None]
